FAERS Safety Report 17156081 (Version 1)
Quarter: 2019Q4

REPORT INFORMATION
  Report Type: Spontaneous
  Country: US (occurrence: US)
  Receive Date: 20191216
  Receipt Date: 20191216
  Transmission Date: 20200122
  Serious: No
  Sender: FDA-Public Use
  Company Number: US-UCBSA-2015028501

PATIENT
  Age: 57 Year
  Sex: Male
  Weight: 65.8 kg

DRUGS (2)
  1. VIMPAT [Suspect]
     Active Substance: LACOSAMIDE
     Dosage: 75 MG, 2X/DAY (BID), FOR ONE YEAR
     Route: 048
  2. VIMPAT [Suspect]
     Active Substance: LACOSAMIDE
     Indication: PARTIAL SEIZURES
     Dosage: UNKOWN DOSE, 2 YEARS AGO

REACTIONS (2)
  - Wrong technique in product usage process [Unknown]
  - Therapeutic response unexpected [Unknown]
